FAERS Safety Report 6133838-3 (Version None)
Quarter: 2009Q1

REPORT INFORMATION
  Report Type: 
  Country: None (occurrence: None)
  Receive Date: 20090326
  Receipt Date: 20090316
  Transmission Date: 20090719
  Serious: Yes (Other)
  Sender: FDA-Public Use
  Company Number: GB-PFIZER INC-2009174125

PATIENT

DRUGS (4)
  1. ATORVASTATIN CALCIUM [Suspect]
     Indication: BLOOD CHOLESTEROL INCREASED
     Dosage: 40 MG, 1X/DAY
     Route: 048
     Dates: start: 20081101, end: 20090124
  2. ALCOHOL [Concomitant]
     Route: 048
  3. QVAR 40 [Concomitant]
     Indication: ASTHMA
     Dosage: UNK
     Route: 055
  4. VENTOLIN [Suspect]
     Indication: ASTHMA
     Dosage: UNK
     Route: 055

REACTIONS (4)
  - CONVULSION [None]
  - DEHYDRATION [None]
  - LOSS OF CONSCIOUSNESS [None]
  - RHABDOMYOLYSIS [None]
